FAERS Safety Report 25879510 (Version 1)
Quarter: 2025Q4

REPORT INFORMATION
  Report Type: Spontaneous
  Country: US (occurrence: US)
  Receive Date: 20251003
  Receipt Date: 20251003
  Transmission Date: 20260118
  Serious: Yes (Other)
  Sender: AMGEN
  Company Number: US-AMGEN-USASP2025193837

PATIENT
  Sex: Female

DRUGS (1)
  1. IMDELLTRA [Suspect]
     Active Substance: TARLATAMAB-DLLE
     Indication: Small cell lung cancer
     Dosage: 10 MILLIGRAM, OFF THERAPY FOR 7 MONTHS
     Route: 065

REACTIONS (4)
  - Cytokine release syndrome [Unknown]
  - Small cell lung cancer [Unknown]
  - Ageusia [Unknown]
  - Off label use [Unknown]
